FAERS Safety Report 17838280 (Version 2)
Quarter: 2020Q3

REPORT INFORMATION
  Report Type: Report from Study
  Country: US (occurrence: US)
  Receive Date: 20200528
  Receipt Date: 20200715
  Transmission Date: 20201103
  Serious: No
  Sender: FDA-Public Use
  Company Number: NVSC2020US145760

PATIENT
  Sex: Female

DRUGS (1)
  1. PROMACTA [Suspect]
     Active Substance: ELTROMBOPAG OLAMINE
     Indication: THROMBOCYTOPENIA
     Dosage: 50 MG, QD
     Route: 048
     Dates: start: 201910

REACTIONS (5)
  - Joint swelling [Unknown]
  - Blood pressure increased [Unknown]
  - Pain in extremity [Unknown]
  - Dizziness [Unknown]
  - Heart rate decreased [Unknown]
